FAERS Safety Report 6151069-8 (Version None)
Quarter: 2009Q2

REPORT INFORMATION
  Report Type: 
  Country: None (occurrence: None)
  Receive Date: 20090410
  Receipt Date: 20090406
  Transmission Date: 20091009
  Serious: Yes (Other)
  Sender: FDA-Public Use
  Company Number: US-JNJFOC-20090402201

PATIENT
  Age: 88 Year
  Sex: Male
  Weight: 77.11 kg

DRUGS (6)
  1. IMODIUM A-D [Suspect]
     Route: 048
  2. IMODIUM A-D [Suspect]
     Indication: DIARRHOEA
     Route: 048
  3. LIPITOR [Concomitant]
     Indication: BLOOD CHOLESTEROL INCREASED
     Dosage: SEVERAL YEARS
  4. COZAAR [Concomitant]
     Indication: HYPERTENSION
     Dosage: SEVERAL YEARS
  5. ASPIRIN [Concomitant]
     Indication: ANTICOAGULANT THERAPY
     Dosage: SEVERAL YEARS
  6. AMOXICILLIN [Concomitant]
     Dosage: FOR 10 DAYS

REACTIONS (2)
  - EPISTAXIS [None]
  - RASH [None]
